FAERS Safety Report 5824584-1 (Version None)
Quarter: 2008Q3

REPORT INFORMATION
  Report Type: 
  Country: None (occurrence: None)
  Receive Date: 20080728
  Receipt Date: 20080128
  Transmission Date: 20090109
  Serious: No
  Sender: FDA-Public Use
  Company Number: US-BAYER-200714129BCC

PATIENT
  Age: 77 Year
  Sex: Female
  Weight: 59 kg

DRUGS (9)
  1. ALEVE (CAPLET) [Suspect]
     Indication: PAIN
     Dosage: TOTAL DAILY DOSE: 440 MG  UNIT DOSE: 220 MG
     Route: 048
     Dates: start: 20071101
  2. TYLENOL [Concomitant]
  3. DILTIAZEM HCL [Concomitant]
     Dosage: TOTAL DAILY DOSE: 180 MG
     Route: 048
  4. QUINAPRIL [Concomitant]
     Dosage: TOTAL DAILY DOSE: 40 MG
  5. HYDROCHLOROTHIAZIDE [Concomitant]
     Dosage: TOTAL DAILY DOSE: 25  MG  UNIT DOSE: 25 MG
  6. PRAVASTATIN [Concomitant]
     Dosage: TOTAL DAILY DOSE: 40 MG
  7. MULTI-VITAMIN [Concomitant]
  8. CALCIUM PLUS VITAMIN D [Concomitant]
  9. OSTEO-BIFLEX [Concomitant]

REACTIONS (1)
  - BLOOD PRESSURE INCREASED [None]
